FAERS Safety Report 7469234-6 (Version None)
Quarter: 2011Q2

REPORT INFORMATION
  Report Type: 
  Country: None (occurrence: None)
  Receive Date: 20110510
  Receipt Date: 20110504
  Transmission Date: 20111010
  Serious: Yes (Death, Other)
  Sender: FDA-Public Use
  Company Number: US-ROXANE LABORATORIES, INC.-2011-RO-00626RO

PATIENT
  Sex: Female

DRUGS (3)
  1. AZATHIOPRINE [Suspect]
     Indication: LUNG TRANSPLANT
  2. PREDNISONE [Suspect]
     Indication: LUNG TRANSPLANT
  3. TACROLIMUS [Suspect]
     Indication: LUNG TRANSPLANT

REACTIONS (2)
  - COMPLICATIONS OF TRANSPLANTED LUNG [None]
  - PNEUMATOSIS INTESTINALIS [None]
